FAERS Safety Report 23586180 (Version 1)
Quarter: 2024Q1

REPORT INFORMATION
  Report Type: Spontaneous
  Country: JP (occurrence: JP)
  Receive Date: 20240301
  Receipt Date: 20240301
  Transmission Date: 20240410
  Serious: Yes (Other)
  Sender: FDA-Public Use
  Company Number: JP-PFIZER INC-PV202400026965

PATIENT
  Age: 71 Year
  Sex: Female

DRUGS (5)
  1. METHYLPREDNISOLONE SODIUM SUCCINATE [Suspect]
     Active Substance: METHYLPREDNISOLONE SODIUM SUCCINATE
     Dosage: 1000 MG, DAILY
     Route: 042
  2. PREDNISOLONE [Suspect]
     Active Substance: PREDNISOLONE
     Dosage: 1 MG/KG, DAILY
  3. IMMUNE GLOBULIN NOS [Suspect]
     Active Substance: IMMUNE GLOBULIN NOS
     Dosage: HIGH-DOSE
  4. TACROLIMUS [Suspect]
     Active Substance: TACROLIMUS
  5. AZATHIOPRINE [Suspect]
     Active Substance: AZATHIOPRINE

REACTIONS (2)
  - Granulocyte count decreased [Recovered/Resolved]
  - Disseminated tuberculosis [Unknown]
